FAERS Safety Report 5936739-6 (Version None)
Quarter: 2008Q4

REPORT INFORMATION
  Report Type: 
  Country: None (occurrence: None)
  Receive Date: 20081029
  Receipt Date: 20081016
  Transmission Date: 20090506
  Serious: Yes (Hospitalization)
  Sender: FDA-Public Use
  Company Number: 2008BI026875

PATIENT
  Sex: Male
  Weight: 81.1939 kg

DRUGS (1)
  1. TYSABRI [Suspect]
     Indication: MULTIPLE SCLEROSIS
     Dosage: 300 MG; QM; IV
     Route: 042
     Dates: start: 20071008

REACTIONS (3)
  - CLOSTRIDIAL INFECTION [None]
  - HYPERTENSION [None]
  - URINARY TRACT INFECTION [None]
